FAERS Safety Report 22348171 (Version 1)
Quarter: 2023Q2

REPORT INFORMATION
  Report Type: Spontaneous
  Country: CN (occurrence: CN)
  Receive Date: 20230522
  Receipt Date: 20230522
  Transmission Date: 20230721
  Serious: Yes (Hospitalization, Other)
  Sender: FDA-Public Use
  Company Number: CN-STRIDES ARCOLAB LIMITED-2023SP007390

PATIENT
  Age: 41 Year
  Sex: Female

DRUGS (24)
  1. ETOPOSIDE [Suspect]
     Active Substance: ETOPOSIDE
     Indication: Diffuse large B-cell lymphoma stage IV
     Dosage: UNK (ESHAP REGIMEN)
     Route: 065
     Dates: start: 20181126
  2. ETOPOSIDE [Suspect]
     Active Substance: ETOPOSIDE
     Dosage: UNK (EPOCH REGIMEN)
     Route: 065
  3. DEXAMETHASONE [Suspect]
     Active Substance: DEXAMETHASONE
     Indication: Diffuse large B-cell lymphoma stage IV
     Dosage: 20 MILLIGRAM (R-GDP REGIMEN)
     Route: 065
  4. DEXAMETHASONE [Suspect]
     Active Substance: DEXAMETHASONE
     Indication: Haemophagocytic lymphohistiocytosis
     Dosage: UNK
     Route: 065
  5. DOXORUBICIN [Suspect]
     Active Substance: DOXORUBICIN
     Indication: Diffuse large B-cell lymphoma stage IV
     Dosage: UNK (R-CHOP REGIMEN)
     Route: 065
     Dates: start: 20180415
  6. DOXORUBICIN [Suspect]
     Active Substance: DOXORUBICIN
     Dosage: UNK (EPOCH REGIMEN)
     Route: 065
  7. PREDNISOLONE [Suspect]
     Active Substance: PREDNISOLONE
     Indication: Diffuse large B-cell lymphoma stage IV
     Dosage: UNK (R-CHOP REGIMEN)
     Route: 065
     Dates: start: 20180415
  8. PREDNISOLONE [Suspect]
     Active Substance: PREDNISOLONE
     Dosage: UNK (EPOCH REGIMEN)
     Route: 065
  9. METHYLPREDNISOLONE [Suspect]
     Active Substance: METHYLPREDNISOLONE
     Indication: Diffuse large B-cell lymphoma stage IV
     Dosage: UNK (ESHAP REGIMEN)
     Route: 065
     Dates: start: 20181126
  10. CISPLATIN [Suspect]
     Active Substance: CISPLATIN
     Indication: Diffuse large B-cell lymphoma stage IV
     Dosage: UNK (ESHAP REGIMEN)
     Route: 065
     Dates: start: 20181126
  11. CISPLATIN [Suspect]
     Active Substance: CISPLATIN
     Dosage: UNK (R-GDP REGIMEN)
     Route: 065
  12. CYTARABINE [Suspect]
     Active Substance: CYTARABINE
     Indication: Diffuse large B-cell lymphoma stage IV
     Dosage: UNK (ESHAP REGIMEN)
     Route: 065
     Dates: start: 20181126
  13. RITUXIMAB [Suspect]
     Active Substance: RITUXIMAB
     Indication: Diffuse large B-cell lymphoma stage IV
     Dosage: UNK (R-CHOP REGIMEN)
     Route: 065
     Dates: start: 20180415
  14. RITUXIMAB [Suspect]
     Active Substance: RITUXIMAB
     Dosage: UNK, MAINTENANCE THERAPY
     Route: 065
     Dates: start: 20190227
  15. RITUXIMAB [Suspect]
     Active Substance: RITUXIMAB
     Dosage: UNK (R-GDP REGIMEN)
     Route: 065
  16. RITUXIMAB [Suspect]
     Active Substance: RITUXIMAB
     Dosage: UNK (R-ICE REGIMEN)
     Route: 065
  17. CYCLOPHOSPHAMIDE [Suspect]
     Active Substance: CYCLOPHOSPHAMIDE
     Indication: Diffuse large B-cell lymphoma stage IV
     Dosage: UNK (R-CHOP REGIMEN)
     Route: 065
     Dates: start: 20180415
  18. CYCLOPHOSPHAMIDE [Suspect]
     Active Substance: CYCLOPHOSPHAMIDE
     Dosage: UNK (EPOCH REGIMEN)
     Route: 065
  19. VINDESINE [Suspect]
     Active Substance: VINDESINE
     Indication: Diffuse large B-cell lymphoma stage IV
     Dosage: UNK (R-CHOP REGIMEN)
     Route: 065
     Dates: start: 20180415
  20. VINDESINE [Suspect]
     Active Substance: VINDESINE
     Dosage: UNK (EPOCH REGIMEN)
     Route: 065
  21. LENALIDOMIDE [Suspect]
     Active Substance: LENALIDOMIDE
     Indication: Diffuse large B-cell lymphoma stage IV
     Dosage: UNK, MAINTENANCE THERAPY
     Route: 065
     Dates: start: 20190227
  22. GEMCITABINE [Suspect]
     Active Substance: GEMCITABINE
     Indication: Diffuse large B-cell lymphoma stage IV
     Dosage: UNK (R-GDP REGIMEN)
     Route: 065
  23. IFOSFAMIDE [Suspect]
     Active Substance: IFOSFAMIDE
     Indication: Diffuse large B-cell lymphoma stage IV
     Dosage: UNK (R-ICE REGIMEN)
     Route: 065
  24. CARBOPLATIN [Suspect]
     Active Substance: CARBOPLATIN
     Indication: Diffuse large B-cell lymphoma stage IV
     Dosage: UNK (R-GDP REGIMEN)
     Route: 065

REACTIONS (7)
  - Pleural effusion [Unknown]
  - Myelosuppression [Unknown]
  - Multiple organ dysfunction syndrome [Unknown]
  - Disease progression [Unknown]
  - Pneumonia [Unknown]
  - Therapy partial responder [Unknown]
  - Drug ineffective [Unknown]
